FAERS Safety Report 15946831 (Version 1)
Quarter: 2019Q1

REPORT INFORMATION
  Report Type: Spontaneous
  Country: FR (occurrence: FR)
  Receive Date: 20190211
  Receipt Date: 20190211
  Transmission Date: 20190417
  Serious: Yes (Hospitalization)
  Sender: FDA-Public Use
  Company Number: FR-MYLANLABS-2019M1011560

PATIENT
  Age: 25 Year
  Sex: Male
  Weight: 66 kg

DRUGS (3)
  1. DOXORUBICINE TEVA [Interacting]
     Active Substance: DOXORUBICIN
     Indication: OSTEOSARCOMA
     Dosage: 114 MILLIGRAM, CYCLE
     Route: 042
     Dates: start: 20180129, end: 20180312
  2. IFOSFAMIDE EG [Interacting]
     Active Substance: IFOSFAMIDE
     Indication: OSTEOSARCOMA
     Dosage: 5700 MILLIGRAM, CYCLE
     Route: 041
     Dates: start: 20180129, end: 20180312
  3. CISPLATIN MYLAN [Suspect]
     Active Substance: CISPLATIN
     Indication: OSTEOSARCOMA
     Dosage: 200 MILLIGRAM, CYCLE
     Route: 041
     Dates: start: 20180129, end: 20180312

REACTIONS (4)
  - Drug interaction [Recovered/Resolved]
  - Anaemia [Recovered/Resolved]
  - Thrombocytopenia [Recovered/Resolved]
  - Neutropenia [Recovered/Resolved]

NARRATIVE: CASE EVENT DATE: 20180129
